FAERS Safety Report 6073942-1 (Version None)
Quarter: 2009Q1

REPORT INFORMATION
  Report Type: 
  Country: None (occurrence: None)
  Receive Date: 20090209
  Receipt Date: 20090209
  Transmission Date: 20090719
  Serious: Yes (Life-Threatening)
  Sender: FDA-Public Use
  Company Number: None

PATIENT
  Age: 57 Year
  Sex: Female
  Weight: 63.9572 kg

DRUGS (4)
  1. ZOSYN [Suspect]
     Indication: PNEUMONIA
     Dosage: ONCE IV
     Route: 042
     Dates: start: 20080412, end: 20080412
  2. ZOSYN [Suspect]
     Indication: PYREXIA
     Dosage: ONCE IV
     Route: 042
     Dates: start: 20080412, end: 20080412
  3. AMOXACILLIN/CLAVULATE [Concomitant]
  4. VANCOMYCIN AND GENTIMICIN [Concomitant]

REACTIONS (2)
  - RASH GENERALISED [None]
  - RESPIRATORY ARREST [None]
